FAERS Safety Report 7345935-5 (Version None)
Quarter: 2011Q1

REPORT INFORMATION
  Report Type: 
  Country: None (occurrence: None)
  Receive Date: 20110311
  Receipt Date: 20110303
  Transmission Date: 20110831
  Serious: No
  Sender: FDA-Public Use
  Company Number: US-BIOGENIDEC-2011BI008475

PATIENT
  Sex: Male

DRUGS (3)
  1. ZYRTEC [Concomitant]
     Indication: PREMEDICATION
     Route: 048
  2. TYSABRI [Suspect]
     Indication: MULTIPLE SCLEROSIS
     Route: 042
     Dates: start: 20100517
  3. AVONEX [Concomitant]
     Indication: MULTIPLE SCLEROSIS
     Route: 030
     Dates: start: 20000901

REACTIONS (4)
  - MUSCLE SPASMS [None]
  - BALANCE DISORDER [None]
  - MUSCLE SPASTICITY [None]
  - MUSCULAR WEAKNESS [None]
